FAERS Safety Report 13231241 (Version 2)
Quarter: 2018Q1

REPORT INFORMATION
  Report Type: Report from Study
  Country: US (occurrence: US)
  Receive Date: 20170214
  Receipt Date: 20180212
  Transmission Date: 20180508
  Serious: Yes (Hospitalization, Other)
  Sender: FDA-Public Use
  Company Number: US-AMAG PHARMACEUTICALS, INC.-AMAG201603183

PATIENT

DRUGS (1)
  1. MAKENA [Suspect]
     Active Substance: HYDROXYPROGESTERONE CAPROATE
     Indication: PRODUCT USED FOR UNKNOWN INDICATION
     Dosage: UNK
     Route: 065
     Dates: start: 20161024, end: 20170220

REACTIONS (7)
  - Premature labour [Unknown]
  - Urinary tract infection [Unknown]
  - Premature delivery [Recovered/Resolved]
  - Premature rupture of membranes [Unknown]
  - Uterine contractions during pregnancy [Unknown]
  - Peripheral swelling [Unknown]
  - Premature labour [Unknown]

NARRATIVE: CASE EVENT DATE: 2016
